FAERS Safety Report 9642727 (Version 2)
Quarter: 2013Q4

REPORT INFORMATION
  Report Type: Spontaneous
  Country: US (occurrence: US)
  Receive Date: 20131024
  Receipt Date: 20131028
  Transmission Date: 20140711
  Serious: Yes (Other)
  Sender: FDA-Public Use
  Company Number: US-RB-059027-13

PATIENT
  Age: 66 Year
  Sex: Female

DRUGS (1)
  1. DELSYM ADULT GRAPE [Suspect]
     Indication: COUGH
     Dosage: 3 OUNCE, 1 DOSE
     Route: 048
     Dates: start: 20131016

REACTIONS (3)
  - Overdose [Recovered/Resolved]
  - Gait disturbance [Recovered/Resolved]
  - Confusional state [Recovered/Resolved]
